FAERS Safety Report 7402134-6 (Version None)
Quarter: 2011Q1

REPORT INFORMATION
  Report Type: 
  Country: None (occurrence: None)
  Receive Date: 20110330
  Receipt Date: 20110322
  Transmission Date: 20110831
  Serious: Yes (Other)
  Sender: FDA-Public Use
  Company Number: 2011IL0079

PATIENT
  Age: 56 Year
  Sex: Female

DRUGS (2)
  1. PREDNISONE (PREDNISOLONE) [Concomitant]
  2. KINERET [Suspect]
     Dosage: 100 MG (100 MG, 1 IN 1 D), SUBCUTANEOUS
     Route: 058
     Dates: start: 20100601, end: 20100918

REACTIONS (4)
  - CONDITION AGGRAVATED [None]
  - HYPERTENSION [None]
  - HEADACHE [None]
  - RHEUMATOID ARTHRITIS [None]
